FAERS Safety Report 4820597-7 (Version None)
Quarter: 2005Q4

REPORT INFORMATION
  Report Type: 
  Country: None (occurrence: None)
  Receive Date: 20051104
  Receipt Date: 20051026
  Transmission Date: 20060501
  Serious: Yes (Death)
  Sender: FDA-Public Use
  Company Number: US-JNJFOC-20050906903

PATIENT
  Sex: Female
  Weight: 91.17 kg

DRUGS (4)
  1. REMICADE [Suspect]
     Route: 042
  2. REMICADE [Suspect]
     Route: 042
  3. REMICADE [Suspect]
     Indication: RHEUMATOID ARTHRITIS
     Route: 042
  4. ULTRAM [Concomitant]
     Indication: RHEUMATOID ARTHRITIS
     Dosage: AS NEED

REACTIONS (2)
  - CEREBRAL HAEMORRHAGE [None]
  - HEPATIC FAILURE [None]
